FAERS Safety Report 9384859 (Version 2)
Quarter: 2013Q3

REPORT INFORMATION
  Report Type: Spontaneous
  Country: US (occurrence: US)
  Receive Date: 20130705
  Receipt Date: 20130827
  Transmission Date: 20140515
  Serious: No
  Sender: FDA-Public Use
  Company Number: US-PFIZER INC-2013198396

PATIENT
  Age: 54 Year
  Sex: Female
  Weight: 63.49 kg

DRUGS (10)
  1. LYRICA [Suspect]
     Indication: DIABETIC NEUROPATHY
     Dosage: 50 MG, 3X/DAY
     Route: 048
     Dates: start: 20130625, end: 20130703
  2. LYRICA [Suspect]
     Indication: NEUROPATHY PERIPHERAL
     Dosage: 50 MG, 1X/DAY
     Route: 048
     Dates: start: 201306
  3. LYRICA [Suspect]
     Dosage: 50 MG, TAKING SOMETIMES ONCE A DAY OR SOMETIMES TWO TIMES A DAY
     Route: 048
  4. LYRICA [Suspect]
     Dosage: 50 MG, UNK
     Route: 048
     Dates: end: 201306
  5. METFORMIN [Concomitant]
     Indication: DIABETES MELLITUS
     Dosage: 500 MG, 4X/DAY
     Route: 048
  6. GLIPIZIDE [Concomitant]
     Indication: DIABETES MELLITUS
     Dosage: 5 MG, 1X/DAY
  7. ARMOUR THYROID [Concomitant]
     Indication: HYPOTHYROIDISM
     Dosage: UNK, 1X/DAY
  8. SIMVASTATIN [Concomitant]
     Dosage: UNK
  9. ALENDRONATE SODIUM [Concomitant]
     Dosage: UNK
  10. LISINOPRIL [Concomitant]
     Dosage: UNK

REACTIONS (3)
  - Intentional drug misuse [Recovered/Resolved]
  - Malaise [Recovered/Resolved]
  - Vomiting [Recovered/Resolved]
